FAERS Safety Report 12617869 (Version 7)
Quarter: 2017Q1

REPORT INFORMATION
  Report Type: Spontaneous
  Country: US (occurrence: US)
  Receive Date: 20160803
  Receipt Date: 20170206
  Transmission Date: 20170428
  Serious: No
  Sender: FDA-Public Use
  Company Number: US-PFIZER INC-2016369938

PATIENT
  Age: 84 Year
  Sex: Female

DRUGS (23)
  1. IBRANCE [Suspect]
     Active Substance: PALBOCICLIB
     Indication: BREAST CANCER METASTATIC
     Dosage: 1 (75 MG) CAPSULE DAILY FOR 21 DAYS
     Dates: start: 20160708
  2. GREEN TEA EXTRACT [Concomitant]
     Dosage: UNK
  3. MILK THISTLE [Concomitant]
     Active Substance: MILK THISTLE
     Dosage: UNK
  4. BOSWELLIA SERRATA EXTRACT [Concomitant]
     Active Substance: INDIAN FRANKINCENSE
     Dosage: UNK
  5. VITAMIN D3 [Concomitant]
     Active Substance: CHOLECALCIFEROL
     Dosage: UNK
  6. ALIGN [Concomitant]
     Active Substance: BIFIDOBACTERIUM LONGUM SUBSP. INFANTIS
     Dosage: UNK
  7. FLAXSEED [Concomitant]
     Active Substance: FLAX SEED
     Dosage: UNK
  8. IBRANCE [Suspect]
     Active Substance: PALBOCICLIB
     Dosage: 75 MG, CYCLIC (TAKE 1 CAPSULE BY MOUTH ON DAYS 1-21, THEN 7 DAYS OFF)
     Route: 048
     Dates: start: 20160708
  9. MELATONIN [Concomitant]
     Active Substance: MELATONIN
     Dosage: UNK
  10. SELENIUM [Concomitant]
     Active Substance: SELENIUM
     Dosage: UNK
  11. ALPHA LIPOIC ACID [Concomitant]
     Active Substance: .ALPHA.-LIPOIC ACID
     Dosage: UNK
  12. TURMERIC [Concomitant]
     Active Substance: TURMERIC
     Dosage: UNK
  13. VITAMIN C [Concomitant]
     Active Substance: ASCORBIC ACID
     Dosage: UNK
  14. PRESERVISION AREDS [Concomitant]
     Active Substance: MINERALS\VITAMINS
     Dosage: UNK
  15. CURCUMIN [Concomitant]
     Active Substance: CURCUMIN
     Dosage: UNK
  16. N-ACETYL-L-CYSTEINE [Concomitant]
     Active Substance: ACETYLCYSTEINE
     Dosage: UNK
  17. VITAMIN K [Concomitant]
     Active Substance: PHYTONADIONE
     Dosage: UNK
  18. GLUCOSAMINE + CHONDROITIN COMPLEX [Concomitant]
     Dosage: UNK
  19. GARLIC. [Concomitant]
     Active Substance: GARLIC
     Dosage: UNK
  20. FASLODEX [Concomitant]
     Active Substance: FULVESTRANT
     Dosage: UNK
  21. MAGNESIUM CITRATE. [Concomitant]
     Active Substance: MAGNESIUM CITRATE
     Dosage: UNK
  22. L THEANINE [Concomitant]
     Dosage: UNK
  23. VITAMIN D2 [Concomitant]
     Active Substance: ERGOCALCIFEROL
     Dosage: UNK

REACTIONS (7)
  - Joint swelling [Unknown]
  - Arthralgia [Not Recovered/Not Resolved]
  - Amnesia [Unknown]
  - Gastric disorder [Unknown]
  - Alopecia [Unknown]
  - Neoplasm progression [Not Recovered/Not Resolved]
  - Myalgia [Unknown]
